FAERS Safety Report 6317423-6 (Version None)
Quarter: 2009Q3

REPORT INFORMATION
  Report Type: 
  Country: None (occurrence: None)
  Receive Date: 20090821
  Receipt Date: 20090811
  Transmission Date: 20100115
  Serious: Yes (Other)
  Sender: FDA-Public Use
  Company Number: US-ELI_LILLY_AND_COMPANY-US200908003979

PATIENT
  Sex: Male
  Weight: 100.68 kg

DRUGS (17)
  1. BYETTA [Suspect]
     Indication: TYPE 2 DIABETES MELLITUS
     Dosage: 10 UG, 2/D
     Route: 058
     Dates: start: 20061101
  2. POTASSIUM CHLORIDE [Concomitant]
     Dosage: 20 MEQ, DAILY (1/D)
  3. NEXIUM [Concomitant]
     Dosage: 40 MG, DAILY (1/D)
  4. ALLOPURINOL [Concomitant]
     Dosage: 300 MG, DAILY (1/D)
  5. ACTOS [Concomitant]
     Dosage: 45 MG, DAILY (1/D)
  6. RIBAVIRIN [Concomitant]
     Dosage: 600 MG, 2/D
  7. PROCRIT [Concomitant]
     Dosage: 40000 U, WEEKLY (1/W)
  8. PEGINTERFERON ALFA-2A [Concomitant]
     Dosage: 180 UG, WEEKLY (1/W)
  9. NEUPOGEN [Concomitant]
     Dosage: 300 UG, WEEKLY (1/W)
  10. MULTI-VITAMIN [Concomitant]
     Dosage: UNK, DAILY (1/D)
  11. VITAMIN B COMPLEX CAP [Concomitant]
     Dosage: UNK, DAILY (1/D)
  12. CALCIUM [Concomitant]
     Dosage: 600 MG, DAILY (1/D)
  13. VITAMIN D [Concomitant]
     Dosage: UNK, DAILY (1/D)
  14. GARLIC [Concomitant]
     Dosage: 1000 MG, DAILY (1/D)
  15. CRANBERRY [Concomitant]
     Dosage: 1680 MG, DAILY (1/D)
  16. FISH OIL [Concomitant]
     Dosage: 1000 MG, DAILY (1/D)
  17. VITAMIN E /001105/ [Concomitant]
     Dosage: 800 MG, DAILY (1/D)

REACTIONS (5)
  - ACUTE HEPATIC FAILURE [None]
  - HEPATIC STEATOSIS [None]
  - LYMPHADENOPATHY [None]
  - NON-HODGKIN'S LYMPHOMA STAGE III [None]
  - SPLENOMEGALY [None]
